FAERS Safety Report 5016107-4 (Version None)
Quarter: 2006Q2

REPORT INFORMATION
  Report Type: 
  Country: None (occurrence: None)
  Receive Date: 20060414
  Receipt Date: 20060305
  Transmission Date: 20061013
  Serious: No
  Sender: FDA-Public Use
  Company Number: 2006SP001097

PATIENT
  Age: 30 Year
  Sex: Male
  Weight: 72.5755 kg

DRUGS (2)
  1. LUNESTA [Suspect]
     Indication: INSOMNIA
     Dosage: 2 MG HS ORAL
     Route: 048
     Dates: start: 20060303
  2. ZYRTEC [Concomitant]

REACTIONS (1)
  - DYSGEUSIA [None]
